FAERS Safety Report 15520855 (Version 1)
Quarter: 2018Q4

REPORT INFORMATION
  Report Type: Report from Study
  Country: US (occurrence: US)
  Receive Date: 20181017
  Receipt Date: 20181017
  Transmission Date: 20190205
  Serious: No
  Sender: FDA-Public Use
  Company Number: US-AMGEN-USASL2018116168

PATIENT
  Sex: Male

DRUGS (1)
  1. REPATHA [Suspect]
     Active Substance: EVOLOCUMAB
     Indication: BLOOD CHOLESTEROL INCREASED
     Dosage: 140 MG, Q2WK
     Route: 065

REACTIONS (8)
  - Fluid retention [Unknown]
  - Abdominal distension [Unknown]
  - Arthralgia [Unknown]
  - Pruritus [Unknown]
  - Gastrointestinal disorder [Unknown]
  - Headache [Unknown]
  - Myalgia [Unknown]
  - Back pain [Unknown]
